FAERS Safety Report 7537187-8 (Version None)
Quarter: 2011Q2

REPORT INFORMATION
  Report Type: 
  Country: None (occurrence: None)
  Receive Date: 20110603
  Receipt Date: 20110520
  Transmission Date: 20111010
  Serious: Yes (Life-Threatening, Hospitalization)
  Sender: FDA-Public Use
  Company Number: DSJ-2011-03299

PATIENT
  Age: 54 Year
  Sex: Male
  Weight: 82 kg

DRUGS (18)
  1. BLOPRESS (CANDESARTAN) [Concomitant]
  2. CRESTOR [Concomitant]
  3. IMAGENIL (350 (IOXALAN) [Concomitant]
  4. XYLOCAINE JELLY (LIDOCAINE HYDROCHLOORIDE) (GEL) [Concomitant]
  5. HEPARIN [Concomitant]
  6. PATYUNA (TICLOPIDINE HYDROCHLORIDE) (TICLOPIDINE HYDROCHLORIDE) [Concomitant]
  7. SEISHOKU (SODIUM CHLORIDE) [Concomitant]
  8. FREEDOCAINE 1% (LIDOCAINE HYDROCHLORIDE) [Concomitant]
  9. OLMESARTAN MEDOXOMIL [Suspect]
     Indication: ESSENTIAL HYPERTENSION
     Dosage: 20 MG, PER ORAL
     Route: 048
     Dates: start: 20091218
  10. CILEXETIL (CANDESARTAN CILEXETIL) [Concomitant]
  11. ASPIRIN [Concomitant]
  12. MILLISRON (CLYCERYL TRINITRATE) [Concomitant]
  13. PROTAMINE SULFATE [Concomitant]
  14. FAMOTIDINE [Concomitant]
  15. ARTIST (CARVEDILOL) [Concomitant]
  16. CEFAMEZIN (CEFAZOLIN SODIUM) [Concomitant]
  17. CERCINE (DIAZEPAM) [Concomitant]
  18. VASOLATOR (GLYCERYL TRINITRATE) [Concomitant]

REACTIONS (3)
  - BILE DUCT CANCER [None]
  - ANGINA PECTORIS [None]
  - HEPATITIS ACUTE [None]
